FAERS Safety Report 16342001 (Version 1)
Quarter: 2019Q3

REPORT INFORMATION
  Report Type: Spontaneous
  Country: US (occurrence: US)
  Receive Date: 20190521
  Receipt Date: 20190521
  Transmission Date: 20191004
  Serious: No
  Sender: FDA-Public Use
  Company Number: None

PATIENT
  Age: 33 Year
  Sex: Female
  Weight: 67.5 kg

DRUGS (7)
  1. CIPROFLOXACIN HCL 500MG TAB [Suspect]
     Active Substance: CIPROFLOXACIN
     Indication: URINARY TRACT INFECTION
     Dosage: ?          QUANTITY:1 TABLET(S);?
     Route: 048
     Dates: start: 20180720, end: 20180728
  2. LEVOTHYROXINE. [Concomitant]
     Active Substance: LEVOTHYROXINE
  3. MAGNESIUM [Concomitant]
     Active Substance: MAGNESIUM
  4. NAC [Concomitant]
     Active Substance: ACETYLCYSTEINE
  5. PRENATAL VITAMIN [Concomitant]
     Active Substance: VITAMINS
  6. VITAMIN D3 [Concomitant]
     Active Substance: CHOLECALCIFEROL
  7. ALA [Concomitant]

REACTIONS (23)
  - Pain [None]
  - Asthenia [None]
  - Tremor [None]
  - Autoimmune thyroiditis [None]
  - Neck pain [None]
  - Eye irritation [None]
  - Neuralgia [None]
  - Burning sensation [None]
  - Vulvovaginal burning sensation [None]
  - Fatigue [None]
  - Suicidal ideation [None]
  - Anxiety [None]
  - Antinuclear antibody positive [None]
  - Sinus disorder [None]
  - Tinnitus [None]
  - Headache [None]
  - Nausea [None]
  - Discomfort [None]
  - Insomnia [None]
  - Malaise [None]
  - Flank pain [None]
  - Paraesthesia [None]
  - Blood glucose abnormal [None]

NARRATIVE: CASE EVENT DATE: 20180720
